FAERS Safety Report 10039461 (Version 2)
Quarter: 2014Q1

REPORT INFORMATION
  Report Type: Spontaneous
  Country: US (occurrence: US)
  Receive Date: 20140326
  Receipt Date: 20140326
  Transmission Date: 20141002
  Serious: Yes (Hospitalization)
  Sender: FDA-Public Use
  Company Number: US-B.I. PHARMACEUTICALS,INC./RIDGEFIELD-2013-BI-31934BP

PATIENT
  Age: 83 Year
  Sex: Male
  Weight: 84 kg

DRUGS (5)
  1. PRADAXA [Suspect]
     Indication: ATRIAL FIBRILLATION
     Dosage: 300 MG
     Route: 065
     Dates: start: 20110517, end: 20111228
  2. RAMIPRIL [Concomitant]
     Dosage: 10 MG
     Route: 065
  3. COREG [Concomitant]
     Dosage: 25 MG
     Route: 065
  4. TAMSULOSIN [Concomitant]
     Dosage: 0.4 MG
     Route: 065
  5. SIMVASTATIN [Concomitant]
     Dosage: 80 MG
     Route: 065

REACTIONS (3)
  - Gastrointestinal haemorrhage [Unknown]
  - Anaemia [Unknown]
  - Coagulopathy [Unknown]
